FAERS Safety Report 10422582 (Version 2)
Quarter: 2014Q3

REPORT INFORMATION
  Report Type: Report from Study
  Country: MX (occurrence: MX)
  Receive Date: 20140901
  Receipt Date: 20140901
  Transmission Date: 20150326
  Serious: No
  Sender: FDA-Public Use
  Company Number: PHHY2014MX094107

PATIENT
  Age: 59 Year
  Sex: Female

DRUGS (5)
  1. CO-DIOVAN [Suspect]
     Active Substance: HYDROCHLOROTHIAZIDE\VALSARTAN
     Dosage: 1.5 DF(160/12.5MG), DAILY (HALF MORNING, ONE EVENING)
     Dates: start: 20140728
  2. GLINORBORAL [Concomitant]
     Indication: DIABETES MELLITUS
     Dosage: 1 UKN, BID BREAKFAST MEAL
     Dates: start: 201106
  3. GALVUS MET [Suspect]
     Active Substance: METFORMIN HYDROCHLORIDE\VILDAGLIPTIN
     Dosage: 500/50 MG, UNK
  4. CO-DIOVAN [Suspect]
     Active Substance: HYDROCHLOROTHIAZIDE\VALSARTAN
     Indication: HYPERTENSION
     Dosage: 1 DF (160/12.5 MG), BID MORNING NIGHT
     Route: 048
     Dates: end: 20140728
  5. INSOGEN [Concomitant]
     Indication: BLOOD TRIGLYCERIDES
     Dosage: 1 DF, BID BREAKFAST/ MEAL
     Dates: start: 20140625

REACTIONS (3)
  - General physical health deterioration [Recovered/Resolved]
  - Blood pressure abnormal [Unknown]
  - Abdominal discomfort [Recovered/Resolved]
